FAERS Safety Report 9798897 (Version 2)
Quarter: 2014Q1

REPORT INFORMATION
  Report Type: Spontaneous
  Country: US (occurrence: US)
  Receive Date: 20140106
  Receipt Date: 20140106
  Transmission Date: 20141002
  Serious: No
  Sender: FDA-Public Use
  Company Number: US-GILEAD-2010-0033462

PATIENT
  Age: 60 Year
  Sex: Female

DRUGS (8)
  1. LETAIRIS [Suspect]
     Indication: PULMONARY HYPERTENSION
     Route: 048
     Dates: start: 20090416, end: 20090423
  2. VENTAVIS [Concomitant]
  3. COUMADIN [Concomitant]
  4. NORVASC [Concomitant]
  5. METOPROLOL [Concomitant]
  6. PLAVIX [Concomitant]
  7. PREVACID [Concomitant]
  8. ZOCOR [Concomitant]

REACTIONS (1)
  - Swelling [Unknown]
